FAERS Safety Report 18451505 (Version 1)
Quarter: 2020Q4

REPORT INFORMATION
  Report Type: Other
  Country: GB (occurrence: GB)
  Receive Date: 20201102
  Receipt Date: 20201102
  Transmission Date: 20210114
  Serious: Yes (Hospitalization)
  Sender: FDA-Public Use
  Company Number: GB-EMCURE PHARMACEUTICALS LTD-2020-EPL-001675

PATIENT
  Age: 4 Year
  Sex: Female

DRUGS (7)
  1. SODIUM HYDROGEN CARBONATE [Concomitant]
     Active Substance: SODIUM BICARBONATE
     Dosage: 200 MILLIGRAM, 1 DOSE PER 1 D
  2. COLECALCIFEROL [Concomitant]
     Active Substance: CHOLECALCIFEROL
     Dosage: 750 INTERNATIONAL UNIT, 1 DOSE PER 1 D
  3. MODIGRAF [Concomitant]
     Active Substance: TACROLIMUS
     Dosage: 3.6 MILLIGRAM, 1 DOSE PER 1 D
  4. SYTRON [Concomitant]
     Dosage: 10 MILLILITER, 1 DOSE PER 1 D
  5. MYCOPHENOLATE MOFETIL. [Concomitant]
     Active Substance: MYCOPHENOLATE MOFETIL
     Dosage: 600 MILLIGRAM, 1 DOSE PER 1 D, 1.5MLS - 517 MG/M2
  6. COTRIMOXAZOLE [Suspect]
     Active Substance: SULFAMETHOXAZOLE\TRIMETHOPRIM
     Indication: PRODUCT USED FOR UNKNOWN INDICATION
     Dosage: (2.8 MLS) DAILY - STOPPED PER PROTOCOL (SHE HAS HAD THIS FOR 6 MONTHS)
     Dates: end: 20200817
  7. SODIUM CHLORIDE. [Concomitant]
     Active Substance: SODIUM CHLORIDE
     Dosage: 20 MILLIMOLE, 1 DOSE PER 1 D, 2 ML

REACTIONS (1)
  - Phospholipidosis [Not Recovered/Not Resolved]
